FAERS Safety Report 6942837-0 (Version None)
Quarter: 2010Q3

REPORT INFORMATION
  Report Type: 
  Country: None (occurrence: None)
  Receive Date: 20100826
  Receipt Date: 20100823
  Transmission Date: 20110219
  Serious: Yes (Disabling)
  Sender: FDA-Public Use
  Company Number: IT-ROCHE-718264

PATIENT
  Sex: Female
  Weight: 50 kg

DRUGS (8)
  1. TOCILIZUMAB [Suspect]
     Dosage: VISIT 30 INFUSION WAS NOT PERFORMED
     Route: 042
     Dates: start: 20090423
  2. TOCILIZUMAB [Suspect]
     Dosage: RESTARTED AT WEEK 31 VISITS. LAST DOSE PRIOR TO SAE: 01 JULY 2010, AS REPORTED DOSAGE FORM: INFUSION
     Route: 042
     Dates: end: 20100729
  3. BLINDED TOCILIZUMAB [Suspect]
     Dosage: AS REPORTED DOSAGE FORM: INFUSION. PART ONE OF PROTOCOL, SIX VISITS OF BLINDED TREATMENT
     Route: 042
  4. PREDNISONE [Concomitant]
     Dates: start: 20091106
  5. OMEPRAZOLE [Concomitant]
     Dates: start: 20030115
  6. WARFARIN SODIUM [Concomitant]
     Dates: start: 20100124
  7. CALCIUM [Concomitant]
     Dates: start: 20081015
  8. COLECALCIFEROL [Concomitant]
     Dates: start: 20081015

REACTIONS (1)
  - PANNICULITIS [None]
